FAERS Safety Report 13150626 (Version 1)
Quarter: 2017Q1

REPORT INFORMATION
  Report Type: Spontaneous
  Country: US (occurrence: US)
  Receive Date: 20170124
  Receipt Date: 20170124
  Transmission Date: 20170428
  Serious: No
  Sender: FDA-Public Use
  Company Number: US-BIOGEN-2017BI00346036

PATIENT
  Sex: Female

DRUGS (1)
  1. PLEGRIDY [Suspect]
     Active Substance: PEGINTERFERON BETA-1A
     Indication: MULTIPLE SCLEROSIS
     Route: 065
     Dates: start: 201411, end: 201607

REACTIONS (7)
  - Radiculopathy [Unknown]
  - Adverse reaction [Unknown]
  - Back pain [Unknown]
  - Tremor [Unknown]
  - Disorientation [Unknown]
  - Balance disorder [Unknown]
  - Confusional state [Unknown]
